FAERS Safety Report 12606232 (Version 1)
Quarter: 2016Q3

REPORT INFORMATION
  Report Type: Spontaneous
  Country: US (occurrence: None)
  Receive Date: 20160728
  Receipt Date: 20160728
  Transmission Date: 20161109
  Serious: Yes (Hospitalization, Disabling)
  Sender: FDA-Public Use
  Company Number: None

PATIENT
  Age: 63 Year
  Sex: Female
  Weight: 92.99 kg

DRUGS (21)
  1. LASIX [Concomitant]
     Active Substance: FUROSEMIDE
  2. MULTI VITAMIN [Concomitant]
     Active Substance: VITAMINS
  3. LEVEMIR [Concomitant]
     Active Substance: INSULIN DETEMIR
  4. VITAMIN D3 [Concomitant]
     Active Substance: CHOLECALCIFEROL
  5. PRAVASTATIN. [Concomitant]
     Active Substance: PRAVASTATIN
  6. CYMBALTA [Concomitant]
     Active Substance: DULOXETINE HYDROCHLORIDE
  7. METFORMIN [Concomitant]
     Active Substance: METFORMIN HYDROCHLORIDE
  8. LEVOTHYROXINE. [Concomitant]
     Active Substance: LEVOTHYROXINE
  9. IRON [Concomitant]
     Active Substance: IRON
  10. URSODIOL. [Concomitant]
     Active Substance: URSODIOL
  11. GENTAMICIN. [Suspect]
     Active Substance: GENTAMICIN
     Indication: POSTOPERATIVE WOUND INFECTION
     Route: 058
     Dates: start: 20131010, end: 20131105
  12. NORCO [Concomitant]
     Active Substance: ACETAMINOPHEN\HYDROCODONE BITARTRATE
  13. KLOR-CON [Concomitant]
     Active Substance: POTASSIUM CHLORIDE
  14. HYDROCODONE [Concomitant]
     Active Substance: HYDROCODONE
  15. XANAX [Concomitant]
     Active Substance: ALPRAZOLAM
  16. VITAMIN C [Concomitant]
     Active Substance: ASCORBIC ACID
  17. TOPROLXL [Concomitant]
  18. ZANAFLEX [Concomitant]
     Active Substance: TIZANIDINE HYDROCHLORIDE
  19. LIDOCAINE. [Concomitant]
     Active Substance: LIDOCAINE
  20. ASPIRIN. [Concomitant]
     Active Substance: ASPIRIN
  21. VITAMIN B12 [Concomitant]
     Active Substance: CYANOCOBALAMIN

REACTIONS (9)
  - Vestibular disorder [None]
  - Feeling abnormal [None]
  - Oscillopsia [None]
  - Toxicity to various agents [None]
  - Vision blurred [None]
  - Motion sickness [None]
  - Screaming [None]
  - Fatigue [None]
  - Tinnitus [None]

NARRATIVE: CASE EVENT DATE: 20131105
